FAERS Safety Report 24264363 (Version 1)
Quarter: 2024Q3

REPORT INFORMATION
  Report Type: Spontaneous
  Country: SE (occurrence: SE)
  Receive Date: 20240829
  Receipt Date: 20240829
  Transmission Date: 20241017
  Serious: Yes (Disabling)
  Sender: BAYER
  Company Number: None

PATIENT
  Age: 29 Year
  Sex: Male

DRUGS (1)
  1. MOXIFLOXACIN [Suspect]
     Active Substance: MOXIFLOXACIN
     Indication: Urinary tract infection
     Route: 048

REACTIONS (1)
  - Iris transillumination defect [Recovered/Resolved with Sequelae]

NARRATIVE: CASE EVENT DATE: 20240101
